FAERS Safety Report 8773835 (Version 1)
Quarter: 2012Q4

REPORT INFORMATION
  Report Type: 
  Country: US (occurrence: US)
  Receive Date: 20120907
  Receipt Date: 20120907
  Transmission Date: 20130627
  Serious: No
  Sender: FDA-Public Use
  Company Number: US-ASTRAZENECA-2012SE60614

PATIENT
  Age: 58 Year
  Sex: Female

DRUGS (2)
  1. TOPROL XL [Suspect]
     Route: 048
  2. MEDICATIONS [Suspect]

REACTIONS (2)
  - Malaise [Unknown]
  - Intentional drug misuse [Unknown]
